FAERS Safety Report 6139201-3 (Version None)
Quarter: 2009Q2

REPORT INFORMATION
  Report Type: 
  Country: None (occurrence: None)
  Receive Date: 20090401
  Receipt Date: 20090324
  Transmission Date: 20091009
  Serious: No
  Sender: FDA-Public Use
  Company Number: JP-JNJFOC-20090307011

PATIENT

DRUGS (1)
  1. RISPERDAL [Suspect]
     Indication: DELIRIUM
     Route: 048

REACTIONS (1)
  - PLATELET COUNT DECREASED [None]
